FAERS Safety Report 7232689-6 (Version None)
Quarter: 2011Q1

REPORT INFORMATION
  Report Type: 
  Country: None (occurrence: None)
  Receive Date: 20110119
  Receipt Date: 20110114
  Transmission Date: 20110831
  Serious: Yes (Other)
  Sender: FDA-Public Use
  Company Number: JP-BRISTOL-MYERS SQUIBB COMPANY-15484470

PATIENT

DRUGS (1)
  1. ABILIFY [Suspect]
     Route: 048
     Dates: start: 20060608, end: 20080630

REACTIONS (12)
  - ILEUS [None]
  - EXTRAPYRAMIDAL DISORDER [None]
  - AKATHISIA [None]
  - SOMNOLENCE [None]
  - LIVER DISORDER [None]
  - HEADACHE [None]
  - IRRITABILITY [None]
  - INSOMNIA [None]
  - DECREASED APPETITE [None]
  - ECZEMA [None]
  - ORTHOSTATIC HYPOTENSION [None]
  - NAUSEA [None]
